FAERS Safety Report 16455244 (Version 1)
Quarter: 2019Q2

REPORT INFORMATION
  Report Type: Spontaneous
  Country: SG (occurrence: SG)
  Receive Date: 20190620
  Receipt Date: 20190620
  Transmission Date: 20190711
  Serious: Yes (Hospitalization)
  Sender: FDA-Public Use
  Company Number: SG-TEVA-2019-SG-1066162

PATIENT
  Age: 60 Year
  Sex: Male

DRUGS (5)
  1. 5-FLUOROURACIL INJECTION [Suspect]
     Active Substance: FLUOROURACIL
     Indication: COLORECTAL CANCER METASTATIC
     Dosage: FORTNIGHTY
     Route: 040
     Dates: start: 20190304, end: 20190318
  2. 5-FLUOROURACIL INJECTION [Suspect]
     Active Substance: FLUOROURACIL
     Dosage: FORTNIGHTY
     Route: 042
     Dates: start: 20190304, end: 20190527
  3. 5-FLUOROURACIL INJECTION [Suspect]
     Active Substance: FLUOROURACIL
     Route: 040
     Dates: start: 20190318, end: 20190318
  4. IRINOTECAN INJECTION [Suspect]
     Active Substance: IRINOTECAN
     Indication: COLORECTAL CANCER METASTATIC
     Dosage: FORTNIGHTY
     Route: 042
     Dates: start: 20190304, end: 20190527
  5. LEUCOVORIN INJECTION [Suspect]
     Active Substance: LEUCOVORIN CALCIUM
     Indication: COLORECTAL CANCER METASTATIC
     Dosage: FORTNIGHTY
     Route: 042
     Dates: start: 20190304, end: 20190527

REACTIONS (3)
  - Anaemia [Recovered/Resolved]
  - Diarrhoea [Recovered/Resolved]
  - Abdominal pain [Recovered/Resolved]

NARRATIVE: CASE EVENT DATE: 20190530
